FAERS Safety Report 5451701-8 (Version None)
Quarter: 2007Q3

REPORT INFORMATION
  Report Type: 
  Country: None (occurrence: None)
  Receive Date: 20070913
  Receipt Date: 20070910
  Transmission Date: 20080115
  Serious: Yes (Hospitalization, Other)
  Sender: FDA-Public Use
  Company Number: US-PFIZER INC-2005148948

PATIENT
  Sex: Female

DRUGS (3)
  1. BEXTRA [Suspect]
     Route: 048
  2. VIOXX [Suspect]
     Indication: ARTHRITIS
     Route: 048
  3. VIOXX [Suspect]
     Indication: BACK PAIN

REACTIONS (4)
  - DEPRESSION [None]
  - INTRACRANIAL ANEURYSM [None]
  - POST-TRAUMATIC STRESS DISORDER [None]
  - THROMBOSIS [None]
